FAERS Safety Report 9943146 (Version 1)
Quarter: 2014Q1

REPORT INFORMATION
  Report Type: Report from Study
  Country: US (occurrence: US)
  Receive Date: 20140303
  Receipt Date: 20140303
  Transmission Date: 20141002
  Serious: No
  Sender: FDA-Public Use
  Company Number: PHEH2014US004164

PATIENT
  Sex: Male

DRUGS (12)
  1. TASIGNA [Suspect]
     Indication: CHRONIC MYELOID LEUKAEMIA
     Dosage: 400 MG, BID
     Route: 048
     Dates: start: 20140131
  2. PRILOSEC [Concomitant]
  3. ORENCIA [Concomitant]
  4. SULFASALAZINE [Concomitant]
  5. HYDROCODONE [Concomitant]
  6. IBUPROFEN [Concomitant]
  7. METHOTREXATE [Concomitant]
  8. ZYRTEC [Concomitant]
  9. FOLIC ACID [Concomitant]
  10. LISINOPRIL [Concomitant]
  11. SIMVASTATIN [Concomitant]
  12. RANITIDINE [Concomitant]

REACTIONS (1)
  - Haematochezia [Unknown]
